FAERS Safety Report 15221751 (Version 1)
Quarter: 2018Q3

REPORT INFORMATION
  Report Type: Spontaneous
  Country: JP (occurrence: JP)
  Receive Date: 20180731
  Receipt Date: 20180731
  Transmission Date: 20181010
  Serious: Yes (Other)
  Sender: FDA-Public Use
  Company Number: JP-BAYER-2018-141544

PATIENT
  Age: 68 Year
  Sex: Male

DRUGS (1)
  1. BAYASPIRIN 100 MG [Suspect]
     Active Substance: ASPIRIN
     Route: 048

REACTIONS (1)
  - Small intestine ulcer [None]

NARRATIVE: CASE EVENT DATE: 20180719
